FAERS Safety Report 24167527 (Version 3)
Quarter: 2024Q4

REPORT INFORMATION
  Report Type: Report from Study
  Country: US (occurrence: US)
  Receive Date: 20240802
  Receipt Date: 20241008
  Transmission Date: 20250114
  Serious: Yes (Hospitalization, Other)
  Sender: GILEAD
  Company Number: US-GILEAD-2024-0680716

PATIENT
  Age: 30 Year
  Sex: Female
  Weight: 87.4 kg

DRUGS (3)
  1. AMBRISENTAN [Suspect]
     Active Substance: AMBRISENTAN
     Indication: Pulmonary arterial hypertension
     Dosage: 10 MG, QD
     Route: 065
     Dates: start: 202403
  2. TREPROSTINIL [Suspect]
     Active Substance: TREPROSTINIL
     Indication: Pulmonary arterial hypertension
     Dosage: 39 ML, Q1MINUTE
     Route: 065
     Dates: start: 202208
  3. REMODULIN [Suspect]
     Active Substance: TREPROSTINIL
     Indication: Pulmonary arterial hypertension
     Dosage: 40 NG, CYCLICAL
     Route: 042
     Dates: start: 202408

REACTIONS (7)
  - Loss of consciousness [Recovered/Resolved]
  - Systemic lupus erythematosus [Unknown]
  - Immunodeficiency [Unknown]
  - Respiratory failure [Unknown]
  - Sepsis [Not Recovered/Not Resolved]
  - Hypoxia [Unknown]
  - Pneumonia [Unknown]
